FAERS Safety Report 7719717-6 (Version None)
Quarter: 2011Q3

REPORT INFORMATION
  Report Type: 
  Country: None (occurrence: None)
  Receive Date: 20110830
  Receipt Date: 20110822
  Transmission Date: 20111222
  Serious: Yes (Other)
  Sender: FDA-Public Use
  Company Number: US-MYLANLABS-2011S1014847

PATIENT
  Age: 58 Year
  Sex: Female
  Weight: 69.85 kg

DRUGS (12)
  1. TRIAMTERENE AND HYDROCHLOROTHIAZIDE [Concomitant]
  2. OXYCODONE/ACETAMINOPHEN [Concomitant]
     Indication: PAIN
     Dosage: 7.5MG/325MG
     Dates: start: 20110603
  3. OXYCONTIN [Concomitant]
  4. FENTANYL-100 [Suspect]
     Dosage: Q72H
     Route: 062
     Dates: start: 20110603, end: 20110609
  5. LIDODERM [Concomitant]
     Route: 062
     Dates: start: 20110609
  6. FENTANYL-100 [Suspect]
     Indication: BACK PAIN
     Dosage: Q72H
     Route: 062
     Dates: start: 20110524, end: 20110603
  7. FENTANYL-100 [Suspect]
     Dosage: Q72H
     Route: 062
     Dates: start: 20110609, end: 20110613
  8. DIAZEPAM [Concomitant]
     Indication: MUSCLE SPASMS
     Dates: start: 20110603
  9. FENTANYL-100 [Suspect]
     Dosage: Q72H
     Route: 062
     Dates: start: 20110609, end: 20110613
  10. ATIVAN [Concomitant]
     Dates: start: 20110509
  11. SYNTHROID [Concomitant]
  12. ADDERALL 5 [Concomitant]
     Dates: start: 20110515

REACTIONS (7)
  - NAUSEA [None]
  - MALAISE [None]
  - OESOPHAGEAL RUPTURE [None]
  - PARAESTHESIA [None]
  - GASTROENTERITIS [None]
  - VOMITING PROJECTILE [None]
  - CARPAL TUNNEL SYNDROME [None]
